FAERS Safety Report 4672856-9 (Version None)
Quarter: 2005Q2

REPORT INFORMATION
  Report Type: 
  Country: None (occurrence: None)
  Receive Date: 20050523
  Receipt Date: 20050505
  Transmission Date: 20051028
  Serious: Yes (Hospitalization)
  Sender: FDA-Public Use
  Company Number: 2005-BP-07788RO

PATIENT
  Age: 46 Year
  Sex: Male

DRUGS (10)
  1. LITHIUM CARBONATE [Suspect]
     Indication: BIPOLAR DISORDER
     Dosage: 300 MG QHS (300 MG) PO
     Route: 048
     Dates: start: 20040209, end: 20040418
  2. LISINOPRIL [Suspect]
     Indication: HYPERTENSION
     Dosage: 20 MG QD PO
     Route: 048
     Dates: start: 20040810, end: 20041026
  3. FOSINOPRIL [Concomitant]
  4. HALOPERIDOL [Concomitant]
  5. BENZTROPINE (BENZTROPINE MESILATE) [Concomitant]
  6. OLANZAPINE [Concomitant]
  7. CLONAZEPAM [Concomitant]
  8. DIVALPROEX SODIUM [Concomitant]
  9. SIMVASTATIN [Concomitant]
  10. ATENOLOL [Concomitant]

REACTIONS (8)
  - BRADYCARDIA [None]
  - DRUG LEVEL BELOW THERAPEUTIC [None]
  - HYPOMANIA [None]
  - SALIVARY HYPERSECRETION [None]
  - SEDATION [None]
  - THERAPEUTIC AGENT TOXICITY [None]
  - TREATMENT NONCOMPLIANCE [None]
  - TREMOR [None]
